FAERS Safety Report 8776446 (Version 1)
Quarter: 2012Q4

REPORT INFORMATION
  Report Type: 
  Country: GB (occurrence: GB)
  Receive Date: 20120910
  Receipt Date: 20120910
  Transmission Date: 20130627
  Serious: Yes (Hospitalization)
  Sender: FDA-Public Use
  Company Number: PHHY2012GB076890

PATIENT
  Age: 91 Year
  Sex: Female

DRUGS (14)
  1. FLUCLOXACILLIN [Suspect]
     Route: 048
     Dates: start: 2010, end: 2010
  2. FLUCLOXACILLIN [Suspect]
     Dosage: 500 mg, QID
     Route: 048
     Dates: start: 20101221, end: 20101228
  3. FLUCLOXACILLIN [Suspect]
     Dosage: 500 mg, QID
     Route: 048
     Dates: end: 20111018
  4. LANSOPRAZOLE [Suspect]
     Dosage: 30 mg, QD
     Route: 048
  5. METRONIDAZOLE [Suspect]
     Dosage: 400 mg, TID
     Route: 048
     Dates: start: 20110322, end: 20110329
  6. PHENOXYMETHYLPENICILLIN CALCIUM [Suspect]
     Dosage: 500 mg, QID
     Route: 048
     Dates: start: 20101011, end: 20101018
  7. TRIMETHOPRIM [Suspect]
     Route: 048
     Dates: start: 20100416, end: 20100419
  8. TRIMETHOPRIM [Suspect]
     Dosage: 200 mg, BID
     Route: 048
     Dates: start: 20110104, end: 20110110
  9. ASPIRIN ^BAYER^ [Concomitant]
  10. DALTEPARIN [Concomitant]
  11. FUROSEMIDE [Concomitant]
  12. LISINOPRIL [Concomitant]
  13. SANDO-K [Concomitant]
  14. SPIRONOLACTONE [Concomitant]

REACTIONS (2)
  - Clostridium difficile infection [Unknown]
  - Diarrhoea [Unknown]
